FAERS Safety Report 12591170 (Version 1)
Quarter: 2016Q3

REPORT INFORMATION
  Report Type: Spontaneous
  Country: US (occurrence: US)
  Receive Date: 20160726
  Receipt Date: 20160726
  Transmission Date: 20161109
  Serious: Yes (Death, Other)
  Sender: FDA-Public Use
  Company Number: US-RECKITT BENCKISER HEALTHCARE INT LIMITED-RB-87939-2016

PATIENT
  Age: 17 Year
  Sex: Male

DRUGS (2)
  1. MUCINEX DM MAXIMUM STRENGTH [Suspect]
     Active Substance: DEXTROMETHORPHAN HYDROBROMIDE\GUAIFENESIN
     Indication: DRUG ABUSE
     Dosage: UNK
     Route: 065
  2. MUCINEX DM MAXIMUM STRENGTH [Suspect]
     Active Substance: DEXTROMETHORPHAN HYDROBROMIDE\GUAIFENESIN
     Dosage: PATIENT TOOK 18 OF THE PRODUCT ON ??-JUN-2016
     Route: 065
     Dates: start: 201606

REACTIONS (4)
  - Drug abuse [Unknown]
  - Loss of consciousness [Unknown]
  - Intentional overdose [Unknown]
  - Hepatic failure [Fatal]

NARRATIVE: CASE EVENT DATE: 2016
